FAERS Safety Report 9508992 (Version 2)
Quarter: 2013Q3

REPORT INFORMATION
  Report Type: Spontaneous
  Country: US (occurrence: US)
  Receive Date: 20130909
  Receipt Date: 20130909
  Transmission Date: 20140515
  Serious: No
  Sender: FDA-Public Use
  Company Number: US-BRISTOL-MYERS SQUIBB COMPANY-17423971

PATIENT
  Age: 5 Decade
  Sex: Male

DRUGS (4)
  1. ABILIFY [Suspect]
     Indication: DEPRESSION
     Dosage: INITIAL DOSE: 5 MG
     Route: 048
     Dates: start: 201209, end: 201211
  2. BUSPAR [Concomitant]
     Indication: DEPRESSION
  3. TEGRETOL [Concomitant]
     Indication: DEPRESSION
  4. CYMBALTA [Concomitant]
     Indication: DEPRESSION

REACTIONS (1)
  - Local swelling [Recovered/Resolved]
